FAERS Safety Report 13285800 (Version 1)
Quarter: 2017Q1

REPORT INFORMATION
  Report Type: Spontaneous
  Country: US (occurrence: US)
  Receive Date: 20170301
  Receipt Date: 20170301
  Transmission Date: 20170428
  Serious: No
  Sender: FDA-Public Use
  Company Number: None

PATIENT
  Sex: Female

DRUGS (1)
  1. FORTEO [Suspect]
     Active Substance: TERIPARATIDE
     Indication: OSTEOPOROSIS
     Route: 058
     Dates: start: 20170130

REACTIONS (6)
  - Insomnia [None]
  - Abdominal pain upper [None]
  - Nausea [None]
  - Eructation [None]
  - Flatulence [None]
  - Diarrhoea [None]
